FAERS Safety Report 6257686-9 (Version None)
Quarter: 2009Q3

REPORT INFORMATION
  Report Type: 
  Country: None (occurrence: None)
  Receive Date: 20090706
  Receipt Date: 20090629
  Transmission Date: 20100115
  Serious: Yes (Other)
  Sender: FDA-Public Use
  Company Number: DE-AVENTIS-200911652DE

PATIENT
  Age: 77 Year
  Sex: Male

DRUGS (1)
  1. LANTUS [Suspect]
     Dosage: DOSE: NOT REPORTED
     Route: 058
     Dates: start: 20090101, end: 20090101

REACTIONS (1)
  - PRECANCEROUS SKIN LESION [None]
